FAERS Safety Report 16271952 (Version 1)
Quarter: 2019Q2

REPORT INFORMATION
  Report Type: Spontaneous
  Country: IT (occurrence: IT)
  Receive Date: 20190503
  Receipt Date: 20190503
  Transmission Date: 20190711
  Serious: Yes (Hospitalization)
  Sender: FDA-Public Use
  Company Number: IT-MYLANLABS-2019M1042422

PATIENT
  Age: 40 Year
  Sex: Female

DRUGS (3)
  1. RIVOTRIL [Concomitant]
     Active Substance: CLONAZEPAM
     Route: 048
  2. LAMICTAL [Concomitant]
     Active Substance: LAMOTRIGINE
     Dosage: 200 MILLIGRAM
     Route: 048
  3. ESCITALOPRAM [Suspect]
     Active Substance: ESCITALOPRAM OXALATE
     Indication: EPILEPSY
     Dosage: 15 MILLIGRAM, QD
     Route: 048
     Dates: start: 20180530, end: 20180630

REACTIONS (2)
  - Sensory disturbance [Recovering/Resolving]
  - Flight of ideas [Recovering/Resolving]

NARRATIVE: CASE EVENT DATE: 20180630
